FAERS Safety Report 10961062 (Version 1)
Quarter: 2015Q1

REPORT INFORMATION
  Report Type: Spontaneous
  Country: US (occurrence: None)
  Receive Date: 20150326
  Receipt Date: 20150326
  Transmission Date: 20150721
  Serious: No
  Sender: FDA-Public Use
  Company Number: None

PATIENT
  Age: 47 Year
  Sex: Female
  Weight: 83.92 kg

DRUGS (12)
  1. ESTROPIPATE. [Concomitant]
     Active Substance: ESTROPIPATE
  2. ANTIHISTAMINE [Concomitant]
     Active Substance: UNSPECIFIED INGREDIENT
  3. MAGNESIUM [Concomitant]
     Active Substance: MAGNESIUM
  4. PROBIOTIC [Concomitant]
     Active Substance: PROBIOTICS NOS
  5. VITAMINS [Concomitant]
     Active Substance: VITAMINS
  6. ONE A DAY FOR WOMEN [Concomitant]
  7. LINZESS [Suspect]
     Active Substance: LINACLOTIDE
     Indication: IRRITABLE BOWEL SYNDROME
     Route: 048
     Dates: start: 20150216, end: 20150322
  8. HYOCOSAMINE [Concomitant]
  9. LINZESS TRIAL [Concomitant]
  10. LEVOXYL [Concomitant]
     Active Substance: LEVOTHYROXINE SODIUM
  11. VITAMIN B12 [Concomitant]
     Active Substance: CYANOCOBALAMIN
  12. LINZESS [Suspect]
     Active Substance: LINACLOTIDE
     Indication: DIVERTICULUM
     Route: 048
     Dates: start: 20150216, end: 20150322

REACTIONS (4)
  - Dehydration [None]
  - Muscle spasms [None]
  - Diarrhoea [None]
  - Headache [None]

NARRATIVE: CASE EVENT DATE: 20150322
